FAERS Safety Report 17506916 (Version 2)
Quarter: 2020Q2

REPORT INFORMATION
  Report Type: Report from Study
  Country: None (occurrence: US)
  Receive Date: 20200306
  Receipt Date: 20200406
  Transmission Date: 20200713
  Serious: Yes (Other)
  Sender: FDA-Public Use
  Company Number: US-ABBVIE-20K-163-3302348-00

PATIENT
  Sex: Male

DRUGS (1)
  1. SKYRIZI [Suspect]
     Active Substance: RISANKIZUMAB-RZAA
     Indication: PSORIASIS
     Route: 058

REACTIONS (6)
  - Erythema [Unknown]
  - Skin plaque [Recovering/Resolving]
  - Therapeutic product effect decreased [Unknown]
  - Hernia repair [Recovering/Resolving]
  - Dry skin [Unknown]
  - Pruritus [Recovered/Resolved]
